APPROVED DRUG PRODUCT: BROMOCRIPTINE MESYLATE
Active Ingredient: BROMOCRIPTINE MESYLATE
Strength: EQ 2.5MG BASE
Dosage Form/Route: TABLET;ORAL
Application: A076962 | Product #001
Applicant: AUROBINDO PHARMA USA INC
Approved: Sep 24, 2004 | RLD: No | RS: No | Type: DISCN